FAERS Safety Report 5495286-9 (Version None)
Quarter: 2007Q4

REPORT INFORMATION
  Report Type: 
  Country: None (occurrence: None)
  Receive Date: 20071024
  Receipt Date: 20071009
  Transmission Date: 20080405
  Serious: Yes (Other)
  Sender: FDA-Public Use
  Company Number: US-PFIZER INC-2007085645

PATIENT
  Sex: Female
  Weight: 59 kg

DRUGS (4)
  1. DETROL LA [Suspect]
     Indication: URINARY INCONTINENCE
     Dates: start: 20070901, end: 20071006
  2. WARFARIN SODIUM [Concomitant]
  3. SYNTHROID [Concomitant]
  4. ATENOLOL [Concomitant]

REACTIONS (3)
  - ARTHRITIS [None]
  - BACK PAIN [None]
  - DYSURIA [None]
